FAERS Safety Report 4482126-X (Version None)
Quarter: 2004Q4

REPORT INFORMATION
  Report Type: 
  Country: None (occurrence: None)
  Receive Date: 20041022
  Receipt Date: 20041011
  Transmission Date: 20050328
  Serious: Yes (Hospitalization)
  Sender: FDA-Public Use
  Company Number: IE-BRISTOL-MYERS SQUIBB COMPANY-12728879

PATIENT
  Age: 31 Year
  Sex: Female

DRUGS (2)
  1. BUSPAR [Suspect]
     Dosage: TOOK MORE THAN 10 TABLETS
     Route: 048
  2. CITALOPRAM [Suspect]
     Dosage: TOOK MORE THAN 10 TABLETS

REACTIONS (2)
  - HYPERKALAEMIA [None]
  - OVERDOSE [None]
